FAERS Safety Report 12417628 (Version 1)
Quarter: 2016Q2

REPORT INFORMATION
  Report Type: Spontaneous
  Country: TR (occurrence: TR)
  Receive Date: 20160530
  Receipt Date: 20160530
  Transmission Date: 20160815
  Serious: Yes (Other)
  Sender: FDA-Public Use
  Company Number: PHHY2016TR072603

PATIENT

DRUGS (1)
  1. RITALIN [Suspect]
     Active Substance: METHYLPHENIDATE HYDROCHLORIDE
     Indication: ATTENTION DEFICIT/HYPERACTIVITY DISORDER
     Dosage: UNK UNK, Q5H
     Route: 065

REACTIONS (6)
  - Sedation [Unknown]
  - Feeling abnormal [Unknown]
  - Heart rate increased [Unknown]
  - Hyperadrenalism [Unknown]
  - Sexual dysfunction [Unknown]
  - Disturbance in attention [Unknown]
